FAERS Safety Report 23720119 (Version 1)
Quarter: 2024Q2

REPORT INFORMATION
  Report Type: Spontaneous
  Country: CN (occurrence: CN)
  Receive Date: 20240408
  Receipt Date: 20240408
  Transmission Date: 20240716
  Serious: Yes (Life-Threatening)
  Sender: FDA-Public Use
  Company Number: CN-PFIZER INC-PV202400045577

PATIENT
  Age: 39 Year
  Sex: Female

DRUGS (3)
  1. CYTARABINE [Suspect]
     Active Substance: CYTARABINE
     Indication: Myelodysplastic syndrome
     Dosage: 150 MG, 1X/DAY
     Route: 041
     Dates: start: 20240312, end: 20240319
  2. IDARUBICIN HYDROCHLORIDE [Suspect]
     Active Substance: IDARUBICIN HYDROCHLORIDE
     Indication: Myelodysplastic syndrome
     Dosage: 10 MG, 1X/DAY
     Route: 041
     Dates: start: 20240312, end: 20240315
  3. VENETOCLAX [Suspect]
     Active Substance: VENETOCLAX
     Indication: Myelodysplastic syndrome
     Dosage: 0.1 G, 1X/DAY
     Route: 048
     Dates: start: 20240311, end: 20240318

REACTIONS (1)
  - Myelosuppression [Unknown]

NARRATIVE: CASE EVENT DATE: 20240315
